FAERS Safety Report 5763623-3 (Version None)
Quarter: 2008Q2

REPORT INFORMATION
  Report Type: 
  Country: None (occurrence: None)
  Receive Date: 20080610
  Receipt Date: 20080526
  Transmission Date: 20081010
  Serious: Yes (Hospitalization)
  Sender: FDA-Public Use
  Company Number: PHHY2008JP06422

PATIENT
  Age: 51 Year
  Sex: Female

DRUGS (3)
  1. NEORAL [Suspect]
     Indication: PEMPHIGUS
     Dosage: 150 MG/DAY
     Route: 048
     Dates: start: 20070417
  2. PREDNISOLONE [Suspect]
     Indication: PEMPHIGUS
     Dosage: 20 MG/DAY
     Route: 048
     Dates: start: 20030101
  3. PLASMA [Concomitant]

REACTIONS (3)
  - RETINAL VEIN OCCLUSION [None]
  - SURGERY [None]
  - VISUAL ACUITY REDUCED [None]
